FAERS Safety Report 6480506-4 (Version None)
Quarter: 2009Q4

REPORT INFORMATION
  Report Type: 
  Country: None (occurrence: None)
  Receive Date: 20091208
  Receipt Date: 20091203
  Transmission Date: 20100525
  Serious: Yes (Death)
  Sender: FDA-Public Use
  Company Number: US-SANOFI-AVENTIS-2009SA006980

PATIENT
  Age: 59 Year
  Sex: Female

DRUGS (13)
  1. PLAVIX [Suspect]
     Route: 048
     Dates: end: 20090101
  2. DURAGESIC-100 [Concomitant]
     Dates: end: 20090101
  3. DILANTIN /AUS/ [Concomitant]
     Dates: end: 20090101
  4. CORTEF /CAN/ [Concomitant]
  5. LYRICA [Concomitant]
  6. PARLODEL /00412202/ [Concomitant]
  7. MACROBID [Concomitant]
  8. LANOXIN [Concomitant]
  9. BUMEX [Concomitant]
  10. LISINOPRIL [Concomitant]
  11. LORAZEPAM [Concomitant]
     Dates: start: 20090101, end: 20090101
  12. DIAZEPAM [Concomitant]
     Dates: end: 20090101
  13. VICODIN [Concomitant]

REACTIONS (1)
  - MYOCARDIAL INFARCTION [None]
